FAERS Safety Report 19168750 (Version 1)
Quarter: 2021Q2

REPORT INFORMATION
  Report Type: Spontaneous
  Country: US (occurrence: US)
  Receive Date: 20210422
  Receipt Date: 20210422
  Transmission Date: 20210717
  Serious: No
  Sender: FDA-Public Use
  Company Number: US-EISAI MEDICAL RESEARCH-EC-2021-091121

PATIENT
  Sex: Female

DRUGS (2)
  1. LENVIMA [Suspect]
     Active Substance: LENVATINIB
     Indication: PRODUCT USED FOR UNKNOWN INDICATION
     Route: 048
     Dates: end: 20210411
  2. LENVIMA [Suspect]
     Active Substance: LENVATINIB
     Dosage: TOOK 14 MG AT 8 AM AND 14 MG AT 1 PM
     Route: 048
     Dates: start: 20210412, end: 20210412

REACTIONS (3)
  - Dizziness [Unknown]
  - Extra dose administered [Unknown]
  - Nausea [Unknown]

NARRATIVE: CASE EVENT DATE: 20210412
